FAERS Safety Report 9443044 (Version 1)
Quarter: 2013Q3

REPORT INFORMATION
  Report Type: Report from Study
  Country: JP (occurrence: JP)
  Receive Date: 20130806
  Receipt Date: 20130806
  Transmission Date: 20140515
  Serious: Yes (Other)
  Sender: FDA-Public Use
  Company Number: JP-BAYER-2013-094218

PATIENT
  Age: 15 Year
  Sex: Male

DRUGS (1)
  1. ACETYLSALICYLIC ACID (} 100 MG) [Suspect]
     Indication: IMMUNOLOGY TEST
     Dosage: 500 MG, UNK

REACTIONS (2)
  - Anaphylactic reaction [None]
  - Food allergy [None]
